FAERS Safety Report 25396981 (Version 1)
Quarter: 2025Q2

REPORT INFORMATION
  Report Type: Spontaneous
  Country: US (occurrence: None)
  Receive Date: 20250603
  Receipt Date: 20250603
  Transmission Date: 20250717
  Serious: Yes (Hospitalization)
  Sender: FDA-CTU
  Company Number: None

PATIENT
  Age: 48 Year
  Sex: Male
  Weight: 79 kg

DRUGS (2)
  1. LISINOPRIL [Suspect]
     Active Substance: LISINOPRIL
     Indication: Hypertension
  2. OLANZAPINE [Suspect]
     Active Substance: OLANZAPINE
     Dosage: FREQUENCY : TWICE A DAY;?

REACTIONS (6)
  - Hepatitis [None]
  - Jaundice [None]
  - Biliary dilatation [None]
  - Hypertransaminasaemia [None]
  - Post-traumatic stress disorder [None]
  - Constipation [None]

NARRATIVE: CASE EVENT DATE: 20250220
